FAERS Safety Report 16413047 (Version 2)
Quarter: 2019Q2

REPORT INFORMATION
  Report Type: Report from Study
  Country: None (occurrence: BE)
  Receive Date: 20190611
  Receipt Date: 20190624
  Transmission Date: 20190711
  Serious: Yes (Hospitalization, Other)
  Sender: FDA-Public Use
  Company Number: BE-ABBVIE-19S-013-2813944-00

PATIENT
  Sex: Male

DRUGS (11)
  1. VITAMIN B12 [Concomitant]
     Active Substance: CYANOCOBALAMIN
     Indication: PRODUCT USED FOR UNKNOWN INDICATION
  2. ASAFLOW [Concomitant]
     Active Substance: ASPIRIN
     Indication: PRODUCT USED FOR UNKNOWN INDICATION
  3. DUODOPA [Suspect]
     Active Substance: CARBIDOPA\LEVODOPA
     Dosage: DOSES CONTINUOUSLY MONITORED AND ADAPTED
     Route: 050
     Dates: start: 20170322, end: 20190426
  4. DUODOPA [Suspect]
     Active Substance: CARBIDOPA\LEVODOPA
     Dosage: MD=5.5ML CD=5ML/HR DURING 16HRS  ED=3.5ML ND=4.2ML/HR DURING 8HRS
     Route: 050
     Dates: start: 2019
  5. AMANTAN [Concomitant]
     Indication: PRODUCT USED FOR UNKNOWN INDICATION
  6. XANAX [Concomitant]
     Active Substance: ALPRAZOLAM
     Indication: PRODUCT USED FOR UNKNOWN INDICATION
     Dosage: FORM STRENGTH: 0.5 MG, ONCE A DAY + 0.25 MG, IF NECESSARY WITH A MAXIMUM OF 4 TIMES A DAY
  7. CHOLIXX [Concomitant]
     Indication: PRODUCT USED FOR UNKNOWN INDICATION
  8. DUODOPA [Suspect]
     Active Substance: CARBIDOPA\LEVODOPA
     Indication: PARKINSON^S DISEASE
     Dosage: MD=10ML CD=4.2ML/HR DURING 16HRS ED=3ML
     Route: 050
     Dates: start: 20161031, end: 20170322
  9. CYMBALTA [Concomitant]
     Active Substance: DULOXETINE HYDROCHLORIDE
     Indication: PRODUCT USED FOR UNKNOWN INDICATION
  10. DUODOPA [Suspect]
     Active Substance: CARBIDOPA\LEVODOPA
     Dosage: MD=5.5ML CD=3.8ML/HR DURING 16HRS ED=3.5ML ND=4.0ML/HR DURING 8HRS
     Route: 050
     Dates: start: 20190426
  11. Q10 [Concomitant]
     Indication: PRODUCT USED FOR UNKNOWN INDICATION

REACTIONS (7)
  - Depressed level of consciousness [Unknown]
  - Colitis [Unknown]
  - Pancreatitis [Unknown]
  - Appendicitis [Unknown]
  - Urinary bladder polyp [Unknown]
  - Cholelithiasis [Unknown]
  - Bladder hypertrophy [Unknown]
